FAERS Safety Report 9398328 (Version 5)
Quarter: 2014Q2

REPORT INFORMATION
  Report Type: Spontaneous
  Country: IT (occurrence: None)
  Receive Date: 20130709
  Receipt Date: 20140414
  Transmission Date: 20141212
  Serious: Yes (Other)
  Sender: FDA-Public Use
  Company Number: AUR-APL-2013-05628

PATIENT
  Age: 62 Year
  Sex: Female

DRUGS (8)
  1. METFORMIN [Suspect]
     Indication: DIABETES MELLITUS
     Route: 048
     Dates: start: 20130524, end: 20130531
  2. EUTIROX(LEVOTHYROXINE SODIUM) [Concomitant]
  3. COAPROVEL(KARVEA HCT) [Concomitant]
  4. CARDICOR(BISOPROLOL FUMARATE) [Concomitant]
  5. LANOXIN(DIGOXIN) [Concomitant]
  6. CALCITRIOL(CALCITRIOL) [Concomitant]
  7. LANSOPRAZOLE(LANSOPRAZOLE) [Concomitant]
  8. COUMADIN (COUMARIN) [Concomitant]

REACTIONS (6)
  - Abdominal pain upper [None]
  - Abdominal pain [None]
  - Diarrhoea [None]
  - Nausea [None]
  - Dyspnoea [None]
  - Throat tightness [None]
